FAERS Safety Report 9251584 (Version 4)
Quarter: 2013Q3

REPORT INFORMATION
  Report Type: Report from Study
  Country: DE (occurrence: DE)
  Receive Date: 20130424
  Receipt Date: 20130701
  Transmission Date: 20140515
  Serious: Yes (Hospitalization)
  Sender: FDA-Public Use
  Company Number: PHHO2013DE005575

PATIENT
  Age: 41 Year
  Sex: Male
  Weight: 120 kg

DRUGS (7)
  1. PREDNISOLONE SANDOZ [Suspect]
     Indication: PROPHYLAXIS
     Dosage: UNK
     Route: 048
     Dates: start: 20130410
  2. PREDNISOLONE SANDOZ [Suspect]
     Dosage: 85 MG, QD
     Route: 048
     Dates: start: 20130417
  3. PREDNISOLONE SANDOZ [Suspect]
     Dosage: 80 MG, QD
     Route: 048
     Dates: start: 20130418
  4. PREDNISOLONE SANDOZ [Suspect]
     Dosage: 7.5 MG, QD
     Route: 048
     Dates: start: 20130510, end: 20130617
  5. CERTICAN [Suspect]
     Indication: PROPHYLAXIS
     Dosage: 3-0-3
     Route: 048
     Dates: start: 20130502
  6. TACROLIMUS [Suspect]
     Indication: LIVER TRANSPLANT
     Dosage: 2-0-2
     Route: 048
     Dates: start: 20130416
  7. CELLCEPT [Concomitant]
     Indication: PROPHYLAXIS
     Dosage: 1000 MG, PER OS BID
     Dates: start: 20130410

REACTIONS (2)
  - Wound dehiscence [Recovering/Resolving]
  - Wound infection [Recovering/Resolving]
